FAERS Safety Report 5023162-4 (Version None)
Quarter: 2006Q2

REPORT INFORMATION
  Report Type: 
  Country: None (occurrence: None)
  Receive Date: 20060612
  Receipt Date: 20060531
  Transmission Date: 20061013
  Serious: Yes (Hospitalization)
  Sender: FDA-Public Use
  Company Number: GR-JNJFOC-20060601565

PATIENT
  Sex: Female

DRUGS (7)
  1. CAELYX [Suspect]
     Indication: ADENOCARCINOMA OF THE CERVIX
     Route: 042
  2. CISPLATIN [Suspect]
     Indication: ADENOCARCINOMA OF THE CERVIX
  3. METHYLPREDNISOLONE [Concomitant]
     Indication: PREMEDICATION
     Route: 048
  4. METHYLPREDNISOLONE [Concomitant]
     Route: 042
  5. CIMETIDINE [Concomitant]
     Indication: PREMEDICATION
     Route: 048
  6. CIMETIDINE [Concomitant]
     Route: 042
  7. DIPHENHYDRAMINE HCL [Concomitant]
     Indication: PREMEDICATION
     Route: 042

REACTIONS (5)
  - ASTHENIA [None]
  - ATRIAL FIBRILLATION [None]
  - CHEST PAIN [None]
  - DYSPNOEA [None]
  - OEDEMA [None]
